FAERS Safety Report 4491447-6 (Version None)
Quarter: 2004Q3

REPORT INFORMATION
  Report Type: 
  Country: None (occurrence: None)
  Receive Date: 20040921
  Receipt Date: 20020226
  Transmission Date: 20050211
  Serious: Yes (Death, Hospitalization)
  Sender: FDA-Public Use
  Company Number: 163-20785-03010145

PATIENT
  Age: 48 Year
  Sex: Male

DRUGS (10)
  1. THALOMID [Suspect]
     Indication: MULTIPLE MYELOMA
     Dosage: 400 MG, QD, ORAL
     Route: 048
     Dates: start: 20010119, end: 20010225
  2. DEXAMETHASONE [Suspect]
     Indication: MULTIPLE MYELOMA
     Dosage: FULL DOSE, ORAL
     Route: 048
     Dates: start: 20010119, end: 20010122
  3. CYTOXAN [Suspect]
     Indication: MULTIPLE MYELOMA
     Dosage: SEE IMAGE
     Route: 042
     Dates: start: 20010119, end: 20010122
  4. CYTOXAN [Suspect]
     Indication: MULTIPLE MYELOMA
     Dosage: SEE IMAGE
     Route: 042
     Dates: start: 20010119, end: 20010122
  5. ADRIAMYCIN PFS [Suspect]
     Indication: MULTIPLE MYELOMA
     Dosage: SEE IMAGE
     Route: 042
     Dates: start: 20010119, end: 20010122
  6. ADRIAMYCIN PFS [Suspect]
     Indication: MULTIPLE MYELOMA
     Dosage: SEE IMAGE
     Route: 042
     Dates: start: 20010216, end: 20010219
  7. ETOPOSIDE [Suspect]
     Indication: MULTIPLE MYELOMA
     Dosage: 40 MG/M2, INTRAVENOUS
     Route: 042
     Dates: start: 20010119, end: 20010122
  8. MELPHALAN (MELPHALAN) (SOLUTION) [Suspect]
     Indication: MULTIPLE MYELOMA
     Dosage: 100 MG/M2, INTRAVENOUS
     Route: 042
     Dates: start: 20010403, end: 20010404
  9. COUMADIN [Concomitant]
  10. LOVENOX [Concomitant]

REACTIONS (8)
  - CATHETER RELATED INFECTION [None]
  - DEATH [None]
  - DYSPNOEA [None]
  - GRAFT VERSUS HOST DISEASE [None]
  - LUNG INFILTRATION [None]
  - PLEURAL EFFUSION [None]
  - PNEUMONIA [None]
  - PYREXIA [None]
